FAERS Safety Report 13864363 (Version 1)
Quarter: 2017Q3

REPORT INFORMATION
  Report Type: Spontaneous
  Country: US (occurrence: US)
  Receive Date: 20170812
  Receipt Date: 20170812
  Transmission Date: 20171127
  Serious: Yes (Hospitalization, Other)
  Sender: FDA-Public Use
  Company Number: None

PATIENT
  Age: 71 Year
  Sex: Female
  Weight: 56.25 kg

DRUGS (5)
  1. L HIP ^SPACER^ [Concomitant]
  2. LORAZEPAM. [Concomitant]
     Active Substance: LORAZEPAM
  3. VITAMIN D [Concomitant]
     Active Substance: CHOLECALCIFEROL
  4. OXYCODONE [Concomitant]
     Active Substance: OXYCODONE
  5. PROLIA [Suspect]
     Active Substance: DENOSUMAB
     Indication: OSTEOPOROSIS
     Dosage: ?          OTHER FREQUENCY:ONCE PER SIX MONTH;?
     Route: 058
     Dates: start: 20160228, end: 20170228

REACTIONS (6)
  - Dysstasia [None]
  - Loss of personal independence in daily activities [None]
  - Arthritis infective [None]
  - Sleep disorder [None]
  - Gait inability [None]
  - Osteopenia [None]

NARRATIVE: CASE EVENT DATE: 20170529
